FAERS Safety Report 20660930 (Version 1)
Quarter: 2022Q1

REPORT INFORMATION
  Report Type: Spontaneous
  Country: US (occurrence: US)
  Receive Date: 20220331
  Receipt Date: 20220331
  Transmission Date: 20220423
  Serious: Yes (Other)
  Sender: FDA-Public Use
  Company Number: US-SA-SAC20220323001606

PATIENT
  Sex: Male

DRUGS (1)
  1. LARONIDASE [Suspect]
     Active Substance: LARONIDASE
     Indication: Mucopolysaccharidosis I
     Dosage: 31.9 MG, QW
     Route: 042
     Dates: start: 20110207

REACTIONS (2)
  - Spinal fusion surgery [Unknown]
  - Jaw disorder [Unknown]

NARRATIVE: CASE EVENT DATE: 20140101
